FAERS Safety Report 13004182 (Version 2)
Quarter: 2020Q2

REPORT INFORMATION
  Report Type: Spontaneous
  Country: GB (occurrence: GB)
  Receive Date: 20161206
  Receipt Date: 20200428
  Transmission Date: 20200713
  Serious: Yes (Disabling)
  Sender: FDA-Public Use
  Company Number: PHHY2016GB162277

PATIENT
  Age: 71 Year
  Sex: Male
  Weight: 68 kg

DRUGS (5)
  1. CARBOMER [Concomitant]
     Active Substance: CARBOMER
     Indication: PRODUCT USED FOR UNKNOWN INDICATION
     Dosage: 10 G (RIGHT EYE WHICH NOW HAS NO LENS.
     Route: 047
  2. TAMSULOSIN [Suspect]
     Active Substance: TAMSULOSIN
     Indication: PROSTATOMEGALY
     Dosage: 400 UG, QD (IN THE MORNING)
     Route: 048
     Dates: start: 2010
  3. LATANOPROST. [Concomitant]
     Active Substance: LATANOPROST
     Indication: PRODUCT USED FOR UNKNOWN INDICATION
     Dosage: 50 UG (LEFT EYE)
     Route: 047
  4. ALENDRONIC ACID [Concomitant]
     Active Substance: ALENDRONIC ACID
     Indication: PRODUCT USED FOR UNKNOWN INDICATION
     Dosage: 70 MG, UNK
     Route: 065
  5. LORATADINE. [Concomitant]
     Active Substance: LORATADINE
     Indication: PRODUCT USED FOR UNKNOWN INDICATION
     Dosage: 10 MG, UNK
     Route: 065

REACTIONS (2)
  - Blindness unilateral [Not Recovered/Not Resolved]
  - Pupillary reflex impaired [Unknown]
